FAERS Safety Report 9937184 (Version 2)
Quarter: 2014Q1

REPORT INFORMATION
  Report Type: Spontaneous
  Country: DE (occurrence: DE)
  Receive Date: 20140301
  Receipt Date: 20140301
  Transmission Date: 20141002
  Serious: Yes (Death, Life-Threatening, Hospitalization, Other)
  Sender: FDA-Public Use
  Company Number: DE-009507513-1402DEU012916

PATIENT
  Age: 72 Year
  Sex: Female
  Weight: 75 kg

DRUGS (10)
  1. JANUMET [Suspect]
     Indication: TYPE 2 DIABETES MELLITUS
     Dosage: TOTAL DAILY DOSE: 150/2550 MG, TID
     Route: 048
  2. PANTOPRAZOLE [Concomitant]
     Dosage: 20 MG, BID
     Route: 048
  3. BISOPROLOL [Concomitant]
     Dosage: 2.5 MG, BID
     Route: 048
  4. RAMIPRIL [Concomitant]
     Dosage: 2.5 MG, 1/1 DAY
     Route: 048
  5. TORSEMIDE [Concomitant]
     Dosage: 10 MG, 1/1DAY
     Route: 048
  6. SIMVASTATIN [Concomitant]
     Dosage: 40 MG, 1/1 DAY
     Route: 048
  7. LEVOTHYROXINE SODIUM [Concomitant]
     Dosage: 70 MICROGRAM, 1/1 DAY
     Route: 048
  8. REPAGLINIDE [Concomitant]
     Dosage: UNK, TID
     Route: 048
  9. CITALOPRAM [Concomitant]
     Dosage: 20 MG, 1/ 1 DAY
     Route: 048
  10. HYDROCHLOROTHIAZIDE [Concomitant]
     Dosage: 25 MG, 1/1 DAY
     Route: 048

REACTIONS (6)
  - Dyspnoea [Unknown]
  - Lactic acidosis [Unknown]
  - Multi-organ failure [Fatal]
  - Drug level increased [Fatal]
  - Gastrointestinal infection [Unknown]
  - Renal failure [Unknown]
